FAERS Safety Report 10524278 (Version 1)
Quarter: 2014Q4

REPORT INFORMATION
  Report Type: Spontaneous
  Country: US (occurrence: None)
  Receive Date: 20141015
  Receipt Date: 20141015
  Transmission Date: 20150528
  Serious: Yes (Other)
  Sender: FDA-Public Use
  Company Number: None

PATIENT
  Sex: Female

DRUGS (2)
  1. VIMPAT [Suspect]
     Active Substance: LACOSAMIDE
     Indication: EPILEPSY
     Route: 048
     Dates: start: 2013
  2. VIMPAT [Suspect]
     Active Substance: LACOSAMIDE
     Indication: COGNITIVE DISORDER
     Route: 048
     Dates: start: 2013

REACTIONS (1)
  - Seizure [None]

NARRATIVE: CASE EVENT DATE: 2013
